FAERS Safety Report 17292848 (Version 2)
Quarter: 2020Q1

REPORT INFORMATION
  Report Type: Report from Study
  Country: GB (occurrence: GB)
  Receive Date: 20200121
  Receipt Date: 20200331
  Transmission Date: 20200409
  Serious: Yes (Hospitalization)
  Sender: FDA-Public Use
  Company Number: NVSC2020GB012248

PATIENT
  Sex: Female

DRUGS (1)
  1. COSENTYX [Suspect]
     Active Substance: SECUKINUMAB
     Indication: PSORIATIC ARTHROPATHY
     Dosage: 300 MG, QMO
     Route: 058
     Dates: start: 20190222

REACTIONS (10)
  - Influenza [Unknown]
  - Arthritis [Unknown]
  - Blindness [Unknown]
  - Back pain [Unknown]
  - Hypoacusis [Unknown]
  - Middle ear effusion [Unknown]
  - Nasopharyngitis [Unknown]
  - Pain [Unknown]
  - Eye pain [Unknown]
  - Gait inability [Unknown]
